FAERS Safety Report 20628323 (Version 1)
Quarter: 2022Q1

REPORT INFORMATION
  Report Type: Spontaneous
  Country: HR (occurrence: HR)
  Receive Date: 20220323
  Receipt Date: 20220323
  Transmission Date: 20220423
  Serious: Yes (Other)
  Sender: FDA-Public Use
  Company Number: HR-PFIZER INC-202200409118

PATIENT
  Age: 49 Year
  Sex: Male

DRUGS (5)
  1. CRIZOTINIB [Suspect]
     Active Substance: CRIZOTINIB
     Dosage: 250 MG, 2X/DAY
     Dates: start: 201602, end: 201706
  2. LORLATINIB [Suspect]
     Active Substance: LORLATINIB
     Indication: Disease progression
     Dosage: 25MG 1X4 CAPSULE
     Dates: start: 201912
  3. PACLITAXEL [Concomitant]
     Active Substance: PACLITAXEL
  4. CARBOPLATIN [Concomitant]
     Active Substance: CARBOPLATIN
  5. PEMETREXED [Concomitant]
     Active Substance: PEMETREXED

REACTIONS (4)
  - Hemiparesis [Unknown]
  - Neoplasm progression [Unknown]
  - Dysarthria [Unknown]
  - Hypercholesterolaemia [Unknown]

NARRATIVE: CASE EVENT DATE: 20170601
